FAERS Safety Report 4546165-2 (Version None)
Quarter: 2005Q1

REPORT INFORMATION
  Report Type: 
  Country: None (occurrence: None)
  Receive Date: 20050103
  Receipt Date: 20041222
  Transmission Date: 20050727
  Serious: No
  Sender: FDA-Public Use
  Company Number: 2004AC01076

PATIENT
  Age: 73 Year
  Sex: Male

DRUGS (2)
  1. IRESSA [Suspect]
     Dosage: 250 MG DAILY
  2. RADIOTHERAPY [Concomitant]

REACTIONS (4)
  - INTERSTITIAL LUNG DISEASE [None]
  - PULMONARY FIBROSIS [None]
  - RADIATION PNEUMONITIS [None]
  - RECALL PHENOMENON [None]
